FAERS Safety Report 6429474-1 (Version None)
Quarter: 2009Q4

REPORT INFORMATION
  Report Type: 
  Country: None (occurrence: None)
  Receive Date: 20091102
  Receipt Date: 20090921
  Transmission Date: 20100525
  Serious: Yes (Hospitalization)
  Sender: FDA-Public Use
  Company Number: WAES 0805USA05040

PATIENT
  Age: 78 Year
  Sex: Male
  Weight: 93.8946 kg

DRUGS (23)
  1. CAP VORINOSTAT UNK [Suspect]
     Indication: ACUTE MYELOID LEUKAEMIA
     Dosage: 400 MG/DAILY/PO ; 400 MG/DAILY/PO ; 400 MG/DAILY/PO ; 400 MG/DAILY/PO
     Route: 048
     Dates: start: 20080331, end: 20080413
  2. CAP VORINOSTAT UNK [Suspect]
     Indication: ACUTE MYELOID LEUKAEMIA
     Dosage: 400 MG/DAILY/PO ; 400 MG/DAILY/PO ; 400 MG/DAILY/PO ; 400 MG/DAILY/PO
     Route: 048
     Dates: start: 20080430, end: 20080513
  3. CAP VORINOSTAT UNK [Suspect]
     Indication: ACUTE MYELOID LEUKAEMIA
     Dosage: 400 MG/DAILY/PO ; 400 MG/DAILY/PO ; 400 MG/DAILY/PO ; 400 MG/DAILY/PO
     Route: 048
     Dates: start: 20080528, end: 20080610
  4. CAP VORINOSTAT UNK [Suspect]
     Indication: ACUTE MYELOID LEUKAEMIA
     Dosage: 400 MG/DAILY/PO ; 400 MG/DAILY/PO ; 400 MG/DAILY/PO ; 400 MG/DAILY/PO
     Route: 048
     Dates: start: 20080702, end: 20080715
  5. DECITABINE UNK [Suspect]
     Indication: ACUTE MYELOID LEUKAEMIA
     Dosage: 45.4 MG/DAILY/IV ; 44.8 MG/DAILY/IV ; 44.8 MG/DAILY/IV ; 44.8 MG/DAILY/IV
     Route: 042
     Dates: start: 20080331, end: 20080404
  6. DECITABINE UNK [Suspect]
     Indication: ACUTE MYELOID LEUKAEMIA
     Dosage: 45.4 MG/DAILY/IV ; 44.8 MG/DAILY/IV ; 44.8 MG/DAILY/IV ; 44.8 MG/DAILY/IV
     Route: 042
     Dates: start: 20080430, end: 20080504
  7. DECITABINE UNK [Suspect]
     Indication: ACUTE MYELOID LEUKAEMIA
     Dosage: 45.4 MG/DAILY/IV ; 44.8 MG/DAILY/IV ; 44.8 MG/DAILY/IV ; 44.8 MG/DAILY/IV
     Route: 042
     Dates: start: 20080528, end: 20080601
  8. DECITABINE UNK [Suspect]
     Indication: ACUTE MYELOID LEUKAEMIA
     Dosage: 45.4 MG/DAILY/IV ; 44.8 MG/DAILY/IV ; 44.8 MG/DAILY/IV ; 44.8 MG/DAILY/IV
     Route: 042
     Dates: start: 20080702, end: 20080703
  9. DECITABINE UNK [Suspect]
     Indication: ACUTE MYELOID LEUKAEMIA
     Dosage: 45.4 MG/DAILY/IV ; 44.8 MG/DAILY/IV ; 44.8 MG/DAILY/IV ; 44.8 MG/DAILY/IV
     Route: 042
     Dates: start: 20080705, end: 20080707
  10. BACTRIM DS [Concomitant]
  11. COLACE [Concomitant]
  12. COMPAZINE [Concomitant]
  13. FLOMAX (MORNIFLUMATE) [Concomitant]
  14. ZOFRAN [Concomitant]
  15. ACETAMINOPHEN [Concomitant]
  16. ACYCLOVIR [Concomitant]
  17. ALLOPURINOL [Concomitant]
  18. CHLORHEXIDINE GLUCONATE [Concomitant]
  19. DIPHENHYDRAMINE HYDROCHLORIDE [Concomitant]
  20. LISINOPRIL [Concomitant]
  21. LORAZEPAM [Concomitant]
  22. METFORMIN HCL [Concomitant]
  23. MOXIFLOXACIN HYDROCHLORIDE [Concomitant]

REACTIONS (20)
  - ACUTE MYOCARDIAL INFARCTION [None]
  - ATRIAL FIBRILLATION [None]
  - CARDIAC FAILURE CONGESTIVE [None]
  - CELLULITIS [None]
  - CORONARY ARTERY DISEASE [None]
  - ENTEROCOCCAL INFECTION [None]
  - FEBRILE NEUTROPENIA [None]
  - FURUNCLE [None]
  - HYPOKINESIA [None]
  - LEFT VENTRICULAR DYSFUNCTION [None]
  - LEFT VENTRICULAR HYPERTROPHY [None]
  - LUNG DISORDER [None]
  - MASTOIDITIS [None]
  - MYOCARDIAL ISCHAEMIA [None]
  - PLEURAL EFFUSION [None]
  - PNEUMONIA [None]
  - PULMONARY OEDEMA [None]
  - RENAL CYST [None]
  - WOUND INFECTION [None]
  - WOUND INFECTION STAPHYLOCOCCAL [None]
